FAERS Safety Report 8061447-8 (Version None)
Quarter: 2012Q1

REPORT INFORMATION
  Report Type: 
  Country: None (occurrence: None)
  Receive Date: 20120120
  Receipt Date: 20111114
  Transmission Date: 20120608
  Serious: No
  Sender: FDA-Public Use
  Company Number: US-ALLERGAN-1114542US

PATIENT
  Age: 83 Year
  Sex: Female

DRUGS (2)
  1. TRAVATAN [Concomitant]
     Indication: GLAUCOMA
     Dosage: UNK
     Route: 047
     Dates: start: 20101101
  2. RESTASIS [Suspect]
     Indication: DRY EYE
     Dosage: 2 GTT, BID
     Route: 047
     Dates: start: 20111025, end: 20111029

REACTIONS (3)
  - EYELID PTOSIS [None]
  - PHOTOPHOBIA [None]
  - EYE PAIN [None]
